FAERS Safety Report 21436946 (Version 3)
Quarter: 2022Q4

REPORT INFORMATION
  Report Type: Spontaneous
  Country: CN (occurrence: CN)
  Receive Date: 20221010
  Receipt Date: 20221017
  Transmission Date: 20230112
  Serious: Yes (Life-Threatening, Hospitalization, Other)
  Sender: FDA-Public Use
  Company Number: CN-MLMSERVICE-20220927-3810890-2

PATIENT
  Age: 15 Year
  Sex: Female
  Weight: 49 kg

DRUGS (1)
  1. METHOTREXATE SODIUM [Suspect]
     Active Substance: METHOTREXATE SODIUM
     Indication: B-cell type acute leukaemia
     Dosage: HIGH DOSE

REACTIONS (6)
  - Drug hypersensitivity [Recovered/Resolved]
  - Mouth ulceration [Recovered/Resolved]
  - Infection [Recovered/Resolved]
  - Skin injury [Recovered/Resolved]
  - Gingival ulceration [Recovered/Resolved]
  - Anal ulcer [Recovered/Resolved]

NARRATIVE: CASE EVENT DATE: 20190101
